FAERS Safety Report 4443500-0 (Version None)
Quarter: 2004Q3

REPORT INFORMATION
  Report Type: 
  Country: None (occurrence: None)
  Receive Date: 20040901
  Receipt Date: 20040824
  Transmission Date: 20050211
  Serious: Yes (Hospitalization)
  Sender: FDA-Public Use
  Company Number: 207175

PATIENT
  Age: 60 Year
  Sex: Female

DRUGS (8)
  1. RAPTIVA [Suspect]
     Indication: PSORIASIS
     Dosage: 0.35 ML, SINGLE, SUBCUTANEOUS
     Route: 058
     Dates: start: 20040611, end: 20040611
  2. ACCUPRIL [Concomitant]
  3. ZETIA [Concomitant]
  4. EVISTA [Concomitant]
  5. LEVOXYL [Concomitant]
  6. AMBIEN [Concomitant]
  7. DRIXORAL (PSEUDOEPHEDRINE SULFATE, DEXBROMPHENIRAMINE MALEATE) [Concomitant]
  8. DYAZIDE [Concomitant]

REACTIONS (7)
  - BLOOD PRESSURE INCREASED [None]
  - DIFFICULTY IN WALKING [None]
  - DIPLOPIA [None]
  - DYSSTASIA [None]
  - MENTAL STATUS CHANGES [None]
  - SPEECH DISORDER [None]
  - TRANSIENT ISCHAEMIC ATTACK [None]
